FAERS Safety Report 5391452-1 (Version None)
Quarter: 2007Q3

REPORT INFORMATION
  Report Type: 
  Country: None (occurrence: None)
  Receive Date: 20070719
  Receipt Date: 20070705
  Transmission Date: 20080115
  Serious: Yes (Other)
  Sender: FDA-Public Use
  Company Number: US-ELI_LILLY_AND_COMPANY-US200707001284

PATIENT
  Age: 36 Year
  Sex: Female

DRUGS (4)
  1. CYMBALTA [Suspect]
     Indication: DEPRESSION
     Dosage: 30 MG, 2/D
     Route: 048
     Dates: start: 20070401
  2. ATIVAN [Concomitant]
     Dosage: 0.05 MG, AS NEEDED
  3. BENADRYL [Concomitant]
  4. TUSSIN [Concomitant]
     Dosage: UNK, AS NEEDED

REACTIONS (5)
  - DIZZINESS [None]
  - LOSS OF CONSCIOUSNESS [None]
  - NAUSEA [None]
  - SKIN LACERATION [None]
  - VOMITING [None]
